FAERS Safety Report 8686782 (Version 2)
Quarter: 2013Q4

REPORT INFORMATION
  Report Type: Spontaneous
  Country: US (occurrence: US)
  Receive Date: 20120727
  Receipt Date: 20131101
  Transmission Date: 20140711
  Serious: No
  Sender: FDA-Public Use
  Company Number: US-009507513-1207USA003856

PATIENT
  Sex: Female

DRUGS (3)
  1. ZOCOR [Suspect]
     Indication: HAEMOGLOBIN INCREASED
     Dosage: 10 MG, QD
     Route: 048
  2. LOSARTAN POTASSIUM [Concomitant]
  3. LEVOXYL [Concomitant]

REACTIONS (1)
  - Myalgia [Not Recovered/Not Resolved]
